FAERS Safety Report 17584022 (Version 1)
Quarter: 2020Q1

REPORT INFORMATION
  Report Type: Report from Study
  Country: US (occurrence: US)
  Receive Date: 20200326
  Receipt Date: 20200326
  Transmission Date: 20200409
  Serious: No
  Sender: FDA-Public Use
  Company Number: NVSC2020US082675

PATIENT
  Age: 63 Year
  Sex: Female
  Weight: 43.99 kg

DRUGS (1)
  1. AFINITOR [Suspect]
     Active Substance: EVEROLIMUS
     Indication: NEUROENDOCRINE TUMOUR
     Dosage: 10 MG, QD
     Route: 048
     Dates: start: 20190808

REACTIONS (10)
  - Abdominal pain upper [Not Recovered/Not Resolved]
  - Vomiting [Unknown]
  - Dyspnoea [Unknown]
  - Weight decreased [Unknown]
  - Abdominal pain [Unknown]
  - Dry skin [Unknown]
  - Insomnia [Unknown]
  - Dizziness [Unknown]
  - Onychomadesis [Unknown]
  - Pruritus [Unknown]

NARRATIVE: CASE EVENT DATE: 20200320
